FAERS Safety Report 11990990 (Version 2)
Quarter: 2016Q1

REPORT INFORMATION
  Report Type: Spontaneous
  Country: US (occurrence: US)
  Receive Date: 20160202
  Receipt Date: 20160215
  Transmission Date: 20160526
  Serious: No
  Sender: FDA-Public Use
  Company Number: US-ASTRAZENECA-2016SE10187

PATIENT
  Sex: Female
  Weight: 44 kg

DRUGS (4)
  1. NEXIUM 24HR [Suspect]
     Active Substance: ESOMEPRAZOLE MAGNESIUM
     Indication: GASTROOESOPHAGEAL REFLUX DISEASE
     Route: 048
  2. NEXIUM [Suspect]
     Active Substance: ESOMEPRAZOLE MAGNESIUM
     Indication: GASTROOESOPHAGEAL REFLUX DISEASE
     Route: 048
  3. TUDORZA PRESSAIR [Suspect]
     Active Substance: ACLIDINIUM BROMIDE
     Indication: CHRONIC OBSTRUCTIVE PULMONARY DISEASE
     Dosage: ONE INHALATION DAILY
     Route: 055
  4. CORTICOSTEROID NOS [Concomitant]
     Active Substance: CORTICOSTEROID NOS
     Indication: PAIN

REACTIONS (11)
  - Intentional product misuse [Not Recovered/Not Resolved]
  - Therapeutic response unexpected [Unknown]
  - Frequent bowel movements [Not Recovered/Not Resolved]
  - Eructation [Unknown]
  - Intentional product misuse [Unknown]
  - Off label use [Unknown]
  - Diarrhoea [Recovered/Resolved]
  - Product use issue [Unknown]
  - Aphonia [Recovering/Resolving]
  - Muscle spasms [Not Recovered/Not Resolved]
  - Pre-existing condition improved [Unknown]
